FAERS Safety Report 4852467-2 (Version None)
Quarter: 2005Q4

REPORT INFORMATION
  Report Type: 
  Country: None (occurrence: None)
  Receive Date: 20051213
  Receipt Date: 20051201
  Transmission Date: 20060501
  Serious: Yes (Hospitalization)
  Sender: FDA-Public Use
  Company Number: CN-BRISTOL-MYERS SQUIBB COMPANY-13200696

PATIENT
  Age: 15 Year

DRUGS (2)
  1. VELOSEF [Suspect]
     Indication: PYREXIA
     Route: 042
     Dates: start: 20050903
  2. VELOSEF [Suspect]
     Indication: NASOPHARYNGITIS
     Route: 042
     Dates: start: 20050903

REACTIONS (2)
  - DRUG ERUPTION [None]
  - MUCOSAL HAEMORRHAGE [None]
